FAERS Safety Report 15437134 (Version 5)
Quarter: 2019Q3

REPORT INFORMATION
  Report Type: Report from Study
  Country: US (occurrence: US)
  Receive Date: 20180927
  Receipt Date: 20190930
  Transmission Date: 20191004
  Serious: No
  Sender: FDA-Public Use
  Company Number: US-CLOVIS ONCOLOGY-CLO-2018-001084

PATIENT
  Sex: Female

DRUGS (3)
  1. RUBRACA [Suspect]
     Active Substance: RUCAPARIB CAMSYLATE
     Dosage: 600 MG, BID
     Route: 048
     Dates: start: 20180811
  2. RUBRACA [Suspect]
     Active Substance: RUCAPARIB CAMSYLATE
     Indication: OVARIAN CANCER
     Dosage: 600 MG, BID
     Route: 048
     Dates: start: 20180807
  3. RUBRACA [Suspect]
     Active Substance: RUCAPARIB CAMSYLATE
     Indication: OVARIAN CANCER
     Dosage: 600 MG, BID
     Route: 048
     Dates: start: 20180817

REACTIONS (16)
  - Feeling abnormal [Not Recovered/Not Resolved]
  - Malignant neoplasm progression [Unknown]
  - Cyst [Unknown]
  - Musculoskeletal pain [Recovering/Resolving]
  - Fatigue [Recovering/Resolving]
  - Dysgeusia [Not Recovered/Not Resolved]
  - Headache [Recovering/Resolving]
  - Decreased appetite [Not Recovered/Not Resolved]
  - Product dose omission [Unknown]
  - Pain in extremity [Recovering/Resolving]
  - Pain in extremity [Recovered/Resolved]
  - Muscular weakness [Recovered/Resolved]
  - Arthralgia [Recovering/Resolving]
  - Dysstasia [Unknown]
  - Nausea [Recovering/Resolving]
  - Abdominal pain upper [Recovering/Resolving]

NARRATIVE: CASE EVENT DATE: 2018
